FAERS Safety Report 11797068 (Version 2)
Quarter: 2015Q4

REPORT INFORMATION
  Report Type: Spontaneous
  Country: FR (occurrence: FR)
  Receive Date: 20151203
  Receipt Date: 20151223
  Transmission Date: 20160305
  Serious: Yes (Hospitalization)
  Sender: FDA-Public Use
  Company Number: FR-PFIZER INC-2015408378

PATIENT
  Age: 69 Year
  Sex: Male

DRUGS (4)
  1. ZALTRAP /06225401/ [Suspect]
     Active Substance: AFLIBERCEPT
     Dosage: 300 MG, CYCLIC
     Route: 041
     Dates: start: 20150930, end: 20151027
  2. CALCIUM LEVOFOLINATE [Suspect]
     Active Substance: LEVOLEUCOVORIN CALCIUM
     Dosage: 370 MG, CYCLIC
     Route: 041
     Dates: start: 20150930, end: 20151027
  3. CAMPTO [Suspect]
     Active Substance: IRINOTECAN
     Dosage: 342 MG, CYCLIC
     Route: 041
     Dates: start: 20150930, end: 20151027
  4. FLUOROURACIL. [Suspect]
     Active Substance: FLUOROURACIL
     Dosage: 760 MG DURING 2H THEN 4566 MG DURING 46H, CYCLIC
     Route: 041
     Dates: start: 20150930, end: 20151027

REACTIONS (2)
  - Leukoencephalopathy [Recovered/Resolved]
  - Confusional state [Recovered/Resolved]

NARRATIVE: CASE EVENT DATE: 20151106
